FAERS Safety Report 7282791-8 (Version None)
Quarter: 2011Q1

REPORT INFORMATION
  Report Type: 
  Country: None (occurrence: None)
  Receive Date: 20110209
  Receipt Date: 20100204
  Transmission Date: 20110831
  Serious: Yes (Other)
  Sender: FDA-Public Use
  Company Number: US-BAYER-200913416NA

PATIENT
  Sex: Female
  Weight: 55 kg

DRUGS (1)
  1. MIRENA [Suspect]
     Indication: CONTRACEPTION
     Dosage: CONTINUOUS
     Route: 015
     Dates: start: 20070801, end: 20091114

REACTIONS (12)
  - VAGINAL INFECTION [None]
  - URINARY TRACT INFECTION [None]
  - BACK PAIN [None]
  - PAIN IN EXTREMITY [None]
  - ABORTION SPONTANEOUS [None]
  - NAUSEA [None]
  - OEDEMA PERIPHERAL [None]
  - PREGNANCY WITH CONTRACEPTIVE DEVICE [None]
  - POST PROCEDURAL HAEMORRHAGE [None]
  - AMENORRHOEA [None]
  - BREAST PAIN [None]
  - DIZZINESS [None]
